FAERS Safety Report 8796556 (Version 1)
Quarter: 2012Q4

REPORT INFORMATION
  Report Type: 
  Country: PG (occurrence: PG)
  Receive Date: 20120919
  Receipt Date: 20120919
  Transmission Date: 20130627
  Serious: Yes (Death)
  Sender: FDA-Public Use
  Company Number: PHHY2010PG094572

PATIENT
  Sex: Female

DRUGS (1)
  1. GLIVEC [Suspect]
     Dosage: UNK
     Dates: start: 20091028

REACTIONS (2)
  - Respiratory failure [Fatal]
  - Pneumonia [Fatal]
